FAERS Safety Report 6838984-4 (Version None)
Quarter: 2010Q3

REPORT INFORMATION
  Report Type: 
  Country: None (occurrence: None)
  Receive Date: 20100713
  Receipt Date: 20071022
  Transmission Date: 20110219
  Serious: No
  Sender: FDA-Public Use
  Company Number: US-PFIZER INC-2007035958

PATIENT
  Sex: Female
  Weight: 104.33 kg

DRUGS (7)
  1. CHANTIX [Suspect]
     Indication: SMOKING CESSATION THERAPY
     Dates: start: 20070401, end: 20070501
  2. VITAMINS [Concomitant]
  3. GLUCOSAMINE [Concomitant]
  4. GARLIC [Concomitant]
  5. ACETYLSALICYLIC ACID [Concomitant]
  6. RESTORIL [Concomitant]
     Indication: INSOMNIA
  7. ALL OTHER THERAPEUTIC PRODUCTS [Concomitant]

REACTIONS (5)
  - DRUG INEFFECTIVE [None]
  - FATIGUE [None]
  - NIGHTMARE [None]
  - SLUGGISHNESS [None]
  - SOMNOLENCE [None]
